FAERS Safety Report 11020189 (Version 1)
Quarter: 2015Q2

REPORT INFORMATION
  Report Type: Spontaneous
  Country: NL (occurrence: NL)
  Receive Date: 20150413
  Receipt Date: 20150413
  Transmission Date: 20150821
  Serious: Yes (Hospitalization)
  Sender: FDA-Public Use
  Company Number: NL-SYMPLMED PHARMACEUTICALS-2015SYM00047

PATIENT
  Age: 42 Year
  Sex: Male
  Weight: 77 kg

DRUGS (1)
  1. ACEON [Suspect]
     Active Substance: PERINDOPRIL ERBUMINE
     Indication: HYPERTENSION
     Dosage: 4 MG, QD
     Route: 048
     Dates: start: 20110101

REACTIONS (5)
  - Bursitis [Recovering/Resolving]
  - Myalgia [Recovering/Resolving]
  - Muscle rupture [Recovering/Resolving]
  - Arthritis [Recovering/Resolving]
  - Bone swelling [Recovering/Resolving]

NARRATIVE: CASE EVENT DATE: 201201
